FAERS Safety Report 25226306 (Version 1)
Quarter: 2025Q2

REPORT INFORMATION
  Report Type: Spontaneous
  Country: ES (occurrence: ES)
  Receive Date: 20250422
  Receipt Date: 20250422
  Transmission Date: 20250717
  Serious: Yes (Hospitalization)
  Sender: MYLAN
  Company Number: None

PATIENT
  Age: 61 Year
  Sex: Male

DRUGS (24)
  1. ATORVASTATIN [Suspect]
     Active Substance: ATORVASTATIN
     Indication: Hypercholesterolaemia
     Dates: start: 20241213, end: 20250129
  2. ATORVASTATIN [Suspect]
     Active Substance: ATORVASTATIN
     Route: 048
     Dates: start: 20241213, end: 20250129
  3. ATORVASTATIN [Suspect]
     Active Substance: ATORVASTATIN
     Route: 048
     Dates: start: 20241213, end: 20250129
  4. ATORVASTATIN [Suspect]
     Active Substance: ATORVASTATIN
     Dates: start: 20241213, end: 20250129
  5. DELAFLOXACIN MEGLUMINE [Suspect]
     Active Substance: DELAFLOXACIN MEGLUMINE
     Indication: Device related infection
     Dosage: 450 MILLIGRAM, BID, 10 TABLETS
     Dates: start: 20241106, end: 20250129
  6. DELAFLOXACIN MEGLUMINE [Suspect]
     Active Substance: DELAFLOXACIN MEGLUMINE
     Dosage: 450 MILLIGRAM, BID, 10 TABLETS
     Route: 048
     Dates: start: 20241106, end: 20250129
  7. DELAFLOXACIN MEGLUMINE [Suspect]
     Active Substance: DELAFLOXACIN MEGLUMINE
     Dosage: 450 MILLIGRAM, BID, 10 TABLETS
     Route: 048
     Dates: start: 20241106, end: 20250129
  8. DELAFLOXACIN MEGLUMINE [Suspect]
     Active Substance: DELAFLOXACIN MEGLUMINE
     Dosage: 450 MILLIGRAM, BID, 10 TABLETS
     Dates: start: 20241106, end: 20250129
  9. BEMPEDOIC ACID\EZETIMIBE [Suspect]
     Active Substance: BEMPEDOIC ACID\EZETIMIBE
     Indication: Hypercholesterolaemia
     Dosage: 1 DOSAGE FORM, QD (28 TABLETS)
     Dates: start: 20241213, end: 20250129
  10. BEMPEDOIC ACID\EZETIMIBE [Suspect]
     Active Substance: BEMPEDOIC ACID\EZETIMIBE
     Dosage: 1 DOSAGE FORM, QD (28 TABLETS)
     Route: 048
     Dates: start: 20241213, end: 20250129
  11. BEMPEDOIC ACID\EZETIMIBE [Suspect]
     Active Substance: BEMPEDOIC ACID\EZETIMIBE
     Dosage: 1 DOSAGE FORM, QD (28 TABLETS)
     Route: 048
     Dates: start: 20241213, end: 20250129
  12. BEMPEDOIC ACID\EZETIMIBE [Suspect]
     Active Substance: BEMPEDOIC ACID\EZETIMIBE
     Dosage: 1 DOSAGE FORM, QD (28 TABLETS)
     Dates: start: 20241213, end: 20250129
  13. CIPROFLOXACIN HYDROCHLORIDE [Concomitant]
     Active Substance: CIPROFLOXACIN HYDROCHLORIDE
     Indication: Device related infection
     Dosage: 750 MILLIGRAM, BID (750MG EVERY 12H ) 14 TABLETS
     Dates: start: 20221223, end: 20241106
  14. CIPROFLOXACIN HYDROCHLORIDE [Concomitant]
     Active Substance: CIPROFLOXACIN HYDROCHLORIDE
     Dosage: 750 MILLIGRAM, BID (750MG EVERY 12H ) 14 TABLETS
     Route: 048
     Dates: start: 20221223, end: 20241106
  15. CIPROFLOXACIN HYDROCHLORIDE [Concomitant]
     Active Substance: CIPROFLOXACIN HYDROCHLORIDE
     Dosage: 750 MILLIGRAM, BID (750MG EVERY 12H ) 14 TABLETS
     Route: 048
     Dates: start: 20221223, end: 20241106
  16. CIPROFLOXACIN HYDROCHLORIDE [Concomitant]
     Active Substance: CIPROFLOXACIN HYDROCHLORIDE
     Dosage: 750 MILLIGRAM, BID (750MG EVERY 12H ) 14 TABLETS
     Dates: start: 20221223, end: 20241106
  17. DALBAVANCIN HYDROCHLORIDE [Concomitant]
     Active Substance: DALBAVANCIN HYDROCHLORIDE
     Indication: Device related infection
     Dosage: 1500 MILLIGRAM, BIWEEKLY (1500MG EVERY 2 WEEKS ),1 VIAL
     Dates: start: 20221223, end: 20241106
  18. DALBAVANCIN HYDROCHLORIDE [Concomitant]
     Active Substance: DALBAVANCIN HYDROCHLORIDE
     Dosage: 1500 MILLIGRAM, BIWEEKLY (1500MG EVERY 2 WEEKS ),1 VIAL
     Dates: start: 20221223, end: 20241106
  19. DALBAVANCIN HYDROCHLORIDE [Concomitant]
     Active Substance: DALBAVANCIN HYDROCHLORIDE
     Dosage: 1500 MILLIGRAM, BIWEEKLY (1500MG EVERY 2 WEEKS ),1 VIAL
     Route: 042
     Dates: start: 20221223, end: 20241106
  20. DALBAVANCIN HYDROCHLORIDE [Concomitant]
     Active Substance: DALBAVANCIN HYDROCHLORIDE
     Dosage: 1500 MILLIGRAM, BIWEEKLY (1500MG EVERY 2 WEEKS ),1 VIAL
     Route: 042
     Dates: start: 20221223, end: 20241106
  21. DALBAVANCIN HYDROCHLORIDE [Concomitant]
     Active Substance: DALBAVANCIN HYDROCHLORIDE
     Dates: start: 20250129, end: 20250129
  22. DALBAVANCIN HYDROCHLORIDE [Concomitant]
     Active Substance: DALBAVANCIN HYDROCHLORIDE
     Dates: start: 20250129, end: 20250129
  23. DALBAVANCIN HYDROCHLORIDE [Concomitant]
     Active Substance: DALBAVANCIN HYDROCHLORIDE
     Route: 042
     Dates: start: 20250129, end: 20250129
  24. DALBAVANCIN HYDROCHLORIDE [Concomitant]
     Active Substance: DALBAVANCIN HYDROCHLORIDE
     Route: 042
     Dates: start: 20250129, end: 20250129

REACTIONS (7)
  - Autonomic nervous system imbalance [Recovered/Resolved]
  - Pallor [Recovered/Resolved]
  - Presyncope [Recovered/Resolved]
  - Hypertension [Recovered/Resolved]
  - Tremor [Recovered/Resolved]
  - Decreased appetite [Recovered/Resolved]
  - Malaise [Recovered/Resolved]

NARRATIVE: CASE EVENT DATE: 20241229
